FAERS Safety Report 9689420 (Version 1)
Quarter: 2013Q4

REPORT INFORMATION
  Report Type: Spontaneous
  Country: US (occurrence: US)
  Receive Date: 20131114
  Receipt Date: 20131114
  Transmission Date: 20140711
  Serious: Yes (Other)
  Sender: FDA-Public Use
  Company Number: PHHY2013US128706

PATIENT
  Age: 26 Year
  Sex: Female

DRUGS (2)
  1. MIRTAZAPINE [Suspect]
  2. FLUVOXAMINE [Interacting]
     Indication: ANOREXIA NERVOSA

REACTIONS (8)
  - Serotonin syndrome [Unknown]
  - Tremor [Unknown]
  - Restlessness [Unknown]
  - Muscle twitching [Unknown]
  - Flushing [Unknown]
  - Hyperhidrosis [Unknown]
  - Nausea [Unknown]
  - Drug interaction [Unknown]
